FAERS Safety Report 11581339 (Version 1)
Quarter: 2015Q4

REPORT INFORMATION
  Report Type: Spontaneous
  Country: US (occurrence: US)
  Receive Date: 20151001
  Receipt Date: 20151001
  Transmission Date: 20160304
  Serious: No
  Sender: FDA-Public Use
  Company Number: US-ROCHE-688302

PATIENT
  Age: 48 Year
  Sex: Male
  Weight: 79.5 kg

DRUGS (3)
  1. NEUPOGEN [Concomitant]
     Active Substance: FILGRASTIM
     Route: 065
  2. PEGASYS [Suspect]
     Active Substance: PEGINTERFERON ALFA-2A
     Indication: HEPATITIS C
     Dosage: TREATED FOR FIVE MONTHS
     Route: 058
  3. COPEGUS [Suspect]
     Active Substance: RIBAVIRIN
     Indication: HEPATITIS C
     Dosage: TREATED FOR 5 MONTHS
     Route: 048

REACTIONS (2)
  - Viral infection [Not Recovered/Not Resolved]
  - Hypertension [Unknown]
